FAERS Safety Report 6668700-0 (Version None)
Quarter: 2010Q2

REPORT INFORMATION
  Report Type: 
  Country: None (occurrence: None)
  Receive Date: 20100402
  Receipt Date: 20100324
  Transmission Date: 20101027
  Serious: Yes (Hospitalization)
  Sender: FDA-Public Use
  Company Number: 009329

PATIENT
  Sex: Female
  Weight: 50 kg

DRUGS (7)
  1. CERTOLIZUMAB PEGOL (CDPI870) [Suspect]
     Indication: RHEUMATOID ARTHRITIS
     Dosage: (400 MG 1X/2 WEEKS SUBCUTANEOUS)
     Route: 058
     Dates: start: 20100315, end: 20100324
  2. PREDNISOLONE [Concomitant]
  3. FENTANYL [Concomitant]
  4. TORSEMIDE [Concomitant]
  5. REKAWAN [Concomitant]
  6. OMEPRAZOLE [Concomitant]
  7. CALCIUM CARBONATE [Concomitant]

REACTIONS (1)
  - PNEUMONIA [None]
